FAERS Safety Report 14079702 (Version 1)
Quarter: 2017Q4

REPORT INFORMATION
  Report Type: Spontaneous
  Country: BR (occurrence: BR)
  Receive Date: 20171012
  Receipt Date: 20171012
  Transmission Date: 20180321
  Serious: Yes (Hospitalization)
  Sender: FDA-Public Use
  Company Number: BR-PFIZER INC-2017397031

PATIENT
  Sex: Female

DRUGS (2)
  1. FELDENE [Suspect]
     Active Substance: PIROXICAM
     Indication: PAIN
  2. FELDENE [Suspect]
     Active Substance: PIROXICAM
     Indication: TENDON INJURY
     Dosage: EVERY 12 HOURS
     Dates: start: 20170910, end: 201709

REACTIONS (8)
  - Toxicity to various agents [Unknown]
  - Blister [Unknown]
  - Dysphonia [Unknown]
  - Prescription drug used without a prescription [Unknown]
  - Pruritus [Unknown]
  - Throat tightness [Unknown]
  - Pyrexia [Unknown]
  - Burning sensation [Unknown]

NARRATIVE: CASE EVENT DATE: 201709
